FAERS Safety Report 11695775 (Version 1)
Quarter: 2015Q4

REPORT INFORMATION
  Report Type: Spontaneous
  Country: US (occurrence: US)
  Receive Date: 20151104
  Receipt Date: 20151104
  Transmission Date: 20160304
  Serious: No
  Sender: FDA-Public Use
  Company Number: US-009507513-1511USA000079

PATIENT
  Sex: Female

DRUGS (1)
  1. IMPLANON [Suspect]
     Active Substance: ETONOGESTREL
     Route: 059

REACTIONS (3)
  - Incorrect drug administration duration [Unknown]
  - Medical device complication [Recovered/Resolved]
  - No adverse event [Unknown]
